FAERS Safety Report 11906651 (Version 1)
Quarter: 2016Q1

REPORT INFORMATION
  Report Type: Spontaneous
  Country: US (occurrence: None)
  Receive Date: 20160108
  Receipt Date: 20160108
  Transmission Date: 20160526
  Serious: Yes (Other)
  Sender: FDA-Public Use
  Company Number: None

PATIENT
  Age: 71 Year
  Sex: Female
  Weight: 68.04 kg

DRUGS (7)
  1. METROPOLOL [Concomitant]
     Active Substance: METOPROLOL
  2. MULTI-VITAMIN [Concomitant]
     Active Substance: .ALPHA.-TOCOPHEROL ACETATE, DL-\ASCORBIC ACID\CYANOCOBALAMIN\FLUORIDE ION\FOLIC ACID\NIACIN\PYRIDOXINE\RIBOFLAVIN\THIAMINE\VITAMIN A\VITAMIN D
  3. METOPROLOL TARTRATE 50 MG CARACO [Suspect]
     Active Substance: METOPROLOL TARTRATE
     Indication: ATRIAL FIBRILLATION
     Route: 048
     Dates: start: 20151212, end: 20151212
  4. PROGESTERONE. [Concomitant]
     Active Substance: PROGESTERONE
  5. TURMERIC [Concomitant]
     Active Substance: TURMERIC
  6. ELEQUIS [Concomitant]
  7. CINNAMON. [Concomitant]
     Active Substance: CINNAMON

REACTIONS (3)
  - Sleep disorder [None]
  - Product substitution issue [None]
  - Heart rate increased [None]

NARRATIVE: CASE EVENT DATE: 20151212
